FAERS Safety Report 25310770 (Version 3)
Quarter: 2025Q2

REPORT INFORMATION
  Report Type: Report from Study
  Country: CO (occurrence: CO)
  Receive Date: 20250514
  Receipt Date: 20250627
  Transmission Date: 20250716
  Serious: Yes (Hospitalization, Other)
  Sender: TAKEDA
  Company Number: CO-TAKEDA-2024TUS098190

PATIENT
  Age: 41 Year
  Sex: Female
  Weight: 41 kg

DRUGS (2)
  1. VEDOLIZUMAB [Suspect]
     Active Substance: VEDOLIZUMAB
     Indication: Crohn^s disease
  2. VEDOLIZUMAB [Suspect]
     Active Substance: VEDOLIZUMAB
     Dosage: 300 MILLIGRAM, Q4WEEKS
     Dates: end: 20250620

REACTIONS (13)
  - Discouragement [Unknown]
  - Haemoglobin abnormal [Unknown]
  - Abdominal pain [Unknown]
  - Malaise [Unknown]
  - Rectal haemorrhage [Unknown]
  - Product dispensing error [Unknown]
  - Irritability [Unknown]
  - Therapeutic product effect decreased [Unknown]
  - Anxiety [Unknown]
  - Negative thoughts [Unknown]
  - Insomnia [Unknown]
  - Mental fatigue [Unknown]
  - Fatigue [Unknown]

NARRATIVE: CASE EVENT DATE: 20250228
